FAERS Safety Report 7877840-X (Version None)
Quarter: 2011Q4

REPORT INFORMATION
  Report Type: 
  Country: None (occurrence: None)
  Receive Date: 20111031
  Receipt Date: 20111031
  Transmission Date: 20120403
  Serious: Yes (Hospitalization)
  Sender: FDA-Public Use
  Company Number: None

PATIENT
  Sex: Male
  Weight: 81.646 kg

DRUGS (1)
  1. CHANTIX [Suspect]
     Indication: SMOKING CESSATION THERAPY
     Dates: start: 20070904, end: 20071104

REACTIONS (5)
  - CHEST PAIN [None]
  - DYSPNOEA [None]
  - DEPRESSION [None]
  - CARDIAC DISORDER [None]
  - SUICIDAL IDEATION [None]
